FAERS Safety Report 5092020-1 (Version None)
Quarter: 2006Q3

REPORT INFORMATION
  Report Type: 
  Country: None (occurrence: None)
  Receive Date: 20060825
  Receipt Date: 20060808
  Transmission Date: 20061208
  Serious: Yes (Death)
  Sender: FDA-Public Use
  Company Number: 0410013

PATIENT
  Age: 1 Year
  Sex: Male

DRUGS (1)
  1. NITISINONE [Suspect]
     Indication: AMINO ACID METABOLISM DISORDER
     Dosage: ORAL
     Route: 048
     Dates: start: 20031009, end: 20040514

REACTIONS (1)
  - HAEMORRHAGIC DIATHESIS [None]
